FAERS Safety Report 14819921 (Version 2)
Quarter: 2018Q2

REPORT INFORMATION
  Report Type: Spontaneous
  Country: DE (occurrence: DE)
  Receive Date: 20180427
  Receipt Date: 20180510
  Transmission Date: 20180711
  Serious: Yes (Hospitalization)
  Sender: FDA-Public Use
  Company Number: DE-EISAI MEDICAL RESEARCH-EC-2018-038617

PATIENT
  Age: 18 Year
  Sex: Female
  Weight: 70 kg

DRUGS (10)
  1. SCOPOLAMIN [Concomitant]
     Active Substance: SCOPOLAMINE
     Indication: SALIVARY HYPERSECRETION
     Dosage: UNKNOWN
     Route: 062
     Dates: start: 2017
  2. FYCOMPA [Interacting]
     Active Substance: PERAMPANEL
     Route: 048
     Dates: start: 201803
  3. METFORMIN [Concomitant]
     Active Substance: METFORMIN HYDROCHLORIDE
     Indication: PRODUCT USED FOR UNKNOWN INDICATION
     Dosage: 1700 MG
     Route: 048
     Dates: start: 2017
  4. VITAMIN D [Concomitant]
     Active Substance: CHOLECALCIFEROL
     Indication: VITAMIN D DEFICIENCY
     Dosage: 500 IE
     Route: 048
     Dates: start: 2017
  5. VALPROATE [Concomitant]
     Active Substance: VALPROIC ACID
     Indication: EPILEPSY
     Dosage: 1450 MG
     Route: 048
     Dates: start: 2016
  6. L-THYROXIN [Concomitant]
     Active Substance: LEVOTHYROXINE SODIUM
     Indication: HYPOTHYROIDISM
     Dosage: 137.5 UG
     Route: 048
  7. ORAL CONTRACEPTIVE [Concomitant]
     Active Substance: UNSPECIFIED INGREDIENT
     Indication: CONTRACEPTION
     Dosage: UNKNOWN
     Route: 048
  8. STIRIPENTOL [Interacting]
     Active Substance: STIRIPENTOL
     Indication: EPILEPSY
     Dosage: 750 MG
     Route: 048
     Dates: start: 201802
  9. CLOBAZAM [Concomitant]
     Active Substance: CLOBAZAM
     Indication: EPILEPSY
     Dosage: 12.5 MG
     Route: 048
     Dates: start: 2017
  10. FYCOMPA [Suspect]
     Active Substance: PERAMPANEL
     Indication: EPILEPSY
     Route: 048
     Dates: start: 2017, end: 201803

REACTIONS (6)
  - Anticonvulsant drug level increased [Recovering/Resolving]
  - Gait disturbance [Unknown]
  - Fatigue [Unknown]
  - Condition aggravated [Unknown]
  - Fall [Unknown]
  - Drug interaction [Recovering/Resolving]

NARRATIVE: CASE EVENT DATE: 201803
